FAERS Safety Report 12284962 (Version 1)
Quarter: 2016Q2

REPORT INFORMATION
  Report Type: Spontaneous
  Country: US (occurrence: US)
  Receive Date: 20160420
  Receipt Date: 20160420
  Transmission Date: 20160815
  Serious: Yes (Hospitalization)
  Sender: FDA-Public Use
  Company Number: US-BEH-2016061337

PATIENT
  Sex: Female
  Weight: 56 kg

DRUGS (22)
  1. ZEMAIRA [Suspect]
     Active Substance: .ALPHA.1-PROTEINASE INHIBITOR HUMAN
     Indication: ALPHA-1 ANTI-TRYPSIN DEFICIENCY
     Dosage: ZEMAIRA 933 GM
     Route: 042
     Dates: start: 20100726
  2. VITAMIN B12 [Concomitant]
     Active Substance: CYANOCOBALAMIN
  3. SODIUM CHLORIDE. [Concomitant]
     Active Substance: SODIUM CHLORIDE
  4. DIPHENHYDRAMINE. [Concomitant]
     Active Substance: DIPHENHYDRAMINE
  5. OXYGEN. [Concomitant]
     Active Substance: OXYGEN
  6. ALBUTEROL. [Concomitant]
     Active Substance: ALBUTEROL
  7. LMX [Concomitant]
     Active Substance: LIDOCAINE
  8. VIT A [Concomitant]
  9. VITAMINS [Concomitant]
     Active Substance: VITAMINS
  10. EPIPEN [Concomitant]
     Active Substance: EPINEPHRINE
  11. CENTRUM SILVER [Concomitant]
     Active Substance: MINERALS\VITAMINS
  12. ASPIRIN. [Concomitant]
     Active Substance: ASPIRIN
  13. CIPRO [Concomitant]
     Active Substance: CIPROFLOXACIN HYDROCHLORIDE
  14. ADVAIR HFA [Concomitant]
     Active Substance: FLUTICASONE PROPIONATE\SALMETEROL XINAFOATE
  15. SPIRIVA [Concomitant]
     Active Substance: TIOTROPIUM BROMIDE MONOHYDRATE
  16. ALPRAZOLAM. [Concomitant]
     Active Substance: ALPRAZOLAM
  17. ZEMAIRA [Suspect]
     Active Substance: .ALPHA.1-PROTEINASE INHIBITOR HUMAN
     Indication: CHRONIC OBSTRUCTIVE PULMONARY DISEASE
     Dosage: ZEMAIRA 933 GM
     Route: 042
     Dates: start: 20100726
  18. SINGULAIR [Concomitant]
     Active Substance: MONTELUKAST SODIUM
  19. CALTRATE [Concomitant]
     Active Substance: CALCIUM CARBONATE
  20. SULFASALAZINE. [Concomitant]
     Active Substance: SULFASALAZINE
  21. PREDNISONE. [Concomitant]
     Active Substance: PREDNISONE
  22. VITAMIN E [Concomitant]
     Active Substance: .ALPHA.-TOCOPHEROL

REACTIONS (1)
  - Chronic obstructive pulmonary disease [Unknown]
